FAERS Safety Report 11189633 (Version 5)
Quarter: 2018Q4

REPORT INFORMATION
  Report Type: Spontaneous
  Country: US (occurrence: US)
  Receive Date: 20150615
  Receipt Date: 20181025
  Transmission Date: 20190204
  Serious: Yes (Hospitalization, Other)
  Sender: FDA-Public Use
  Company Number: US-DSJP-DSU-2015-103258

PATIENT

DRUGS (3)
  1. BENICAR [Suspect]
     Active Substance: OLMESARTAN MEDOXOMIL
     Indication: HYPERTENSION
     Dosage: 20 MG
     Dates: start: 2002, end: 20130506
  2. BENICAR [Suspect]
     Active Substance: OLMESARTAN MEDOXOMIL
     Dosage: 40 MG, BID
     Route: 048
     Dates: start: 2002, end: 20130506
  3. HYDROCHLOROTHIAZIDE. [Concomitant]
     Active Substance: HYDROCHLOROTHIAZIDE
     Indication: PRODUCT USED FOR UNKNOWN INDICATION
     Dosage: 25 MG, UNK

REACTIONS (12)
  - Anaemia [Not Recovered/Not Resolved]
  - Gastrointestinal bacterial overgrowth [Unknown]
  - Duodenal ulcer [Unknown]
  - Sprue-like enteropathy [Recovered/Resolved]
  - Acute kidney injury [Unknown]
  - Anal injury [Unknown]
  - Dizziness [Unknown]
  - Lactose intolerance [Unknown]
  - Large intestine polyp [Unknown]
  - Anxiety [Unknown]
  - Haematochezia [Not Recovered/Not Resolved]
  - Depression [Unknown]

NARRATIVE: CASE EVENT DATE: 20110823
